FAERS Safety Report 7152416-0 (Version None)
Quarter: 2010Q4

REPORT INFORMATION
  Report Type: 
  Country: None (occurrence: None)
  Receive Date: 20101124
  Receipt Date: 20101117
  Transmission Date: 20110411
  Serious: Yes (Death)
  Sender: FDA-Public Use
  Company Number: CAP10000436

PATIENT
  Age: 81 Year
  Sex: Female

DRUGS (24)
  1. MACROBID [Suspect]
     Indication: PRODUCT USED FOR UNKNOWN INDICATION
     Dosage: 50 MG, DAILY, ORAL
     Route: 048
  2. ACETAMINOPHEN [Concomitant]
  3. ASPIRIN [Concomitant]
  4. AGRYLIN [Concomitant]
  5. AMOXIL /00249601/ (AMOXICILLIN) [Concomitant]
  6. ASTROVENT (IPRATROPIUM BROMIDE) [Concomitant]
  7. CALCITONIN (CALCITONIN) [Concomitant]
  8. CIPRO [Concomitant]
  9. CIPRO XL (CIPROFLOXACIN HYDROCHLORIDE) [Concomitant]
  10. COLACE (DOCUSATE SODIUM) [Concomitant]
  11. FERROUS SULFATE TAB [Concomitant]
  12. FOSAMAX [Concomitant]
  13. IMOVANE (ZOPICLONE) [Concomitant]
  14. LASIX [Concomitant]
  15. LYRICA [Concomitant]
  16. METOPROLOL SUCCINATE [Concomitant]
  17. NORVASC [Concomitant]
  18. PANTOLOC /01263201/ (PANTOPRAZOLE) [Concomitant]
  19. PREDNISONE [Concomitant]
  20. SUPEUDOL (OXYCODONE HYDROCHLORIDE) [Concomitant]
  21. SYNTHROID [Concomitant]
  22. URSODIOL (URSODEXOYCHOLIC ACID) [Concomitant]
  23. VANCOCIN (VANCOMYCIN HYDROCHLORIDE) [Concomitant]
  24. ERGOCALCIFEROL [Concomitant]

REACTIONS (3)
  - ACUTE HEPATIC FAILURE [None]
  - RASH MACULO-PAPULAR [None]
  - THROMBOCYTOPENIA [None]
